FAERS Safety Report 6128009-0 (Version None)
Quarter: 2009Q1

REPORT INFORMATION
  Report Type: 
  Country: None (occurrence: None)
  Receive Date: 20090323
  Receipt Date: 20090319
  Transmission Date: 20090719
  Serious: Yes (Death)
  Sender: FDA-Public Use
  Company Number: IT-JNJFOC-20090304968

PATIENT
  Sex: Male

DRUGS (4)
  1. PREZISTA [Suspect]
     Indication: HIV INFECTION
     Route: 048
  2. RITONAVIR [Concomitant]
     Indication: HIV INFECTION
  3. RALTEGRAVIR [Concomitant]
     Indication: HIV INFECTION
  4. MARAVIROC [Concomitant]
     Indication: HIV INFECTION

REACTIONS (2)
  - CARDIAC DISORDER [None]
  - DISEASE PROGRESSION [None]
